FAERS Safety Report 8675575 (Version 2)
Quarter: 2012Q4

REPORT INFORMATION
  Report Type: 
  Country: US (occurrence: US)
  Receive Date: 20120720
  Receipt Date: 20121005
  Transmission Date: 20130627
  Serious: Yes (Hospitalization, Other)
  Sender: FDA-Public Use
  Company Number: US-ELI_LILLY_AND_COMPANY-US201207003385

PATIENT
  Age: 56 Year
  Sex: Male

DRUGS (4)
  1. HUMULIN REGULAR [Suspect]
     Indication: TYPE 2 DIABETES MELLITUS
     Dosage: 0.24 ml, each morning
  2. HUMULIN REGULAR [Suspect]
     Dosage: 0.05 ml, qd
  3. HUMULIN REGULAR [Suspect]
     Dosage: 0.016 ml, each evening
  4. INSULIN [Concomitant]
     Dosage: UNK, unknown

REACTIONS (1)
  - Rhabdomyolysis [Recovered/Resolved]
